FAERS Safety Report 18001702 (Version 3)
Quarter: 2020Q3

REPORT INFORMATION
  Report Type: Other
  Country: SK (occurrence: SK)
  Receive Date: 20200709
  Receipt Date: 20200817
  Transmission Date: 20201103
  Serious: Yes (Hospitalization, Other)
  Sender: FDA-Public Use
  Company Number: SK-ABBVIE-20K-260-3476414-00

PATIENT
  Sex: Male

DRUGS (11)
  1. VENETOCLAX. [Suspect]
     Active Substance: VENETOCLAX
     Indication: CHRONIC LYMPHOCYTIC LEUKAEMIA RECURRENT
     Dosage: WEEK 1
     Route: 048
     Dates: start: 201906, end: 2019
  2. VENETOCLAX. [Suspect]
     Active Substance: VENETOCLAX
     Dosage: WEEK 3
     Route: 048
     Dates: start: 2019, end: 2019
  3. VENETOCLAX. [Suspect]
     Active Substance: VENETOCLAX
     Dosage: WEEK 4
     Route: 048
     Dates: start: 2019, end: 2019
  4. VENETOCLAX. [Suspect]
     Active Substance: VENETOCLAX
     Dosage: OUTPATIENT WEEK 1
     Route: 048
     Dates: start: 2019, end: 2019
  5. VENETOCLAX. [Suspect]
     Active Substance: VENETOCLAX
     Dosage: WEEK 12
     Route: 048
     Dates: start: 2019
  6. IMBRUVICA [Suspect]
     Active Substance: IBRUTINIB
     Indication: CHRONIC LYMPHOCYTIC LEUKAEMIA STAGE 1
     Route: 065
     Dates: start: 201610, end: 201906
  7. IMBRUVICA [Suspect]
     Active Substance: IBRUTINIB
     Indication: LYMPHOCYTIC LYMPHOMA
  8. VENETOCLAX. [Suspect]
     Active Substance: VENETOCLAX
     Dosage: OUTPATIENT WEEK 2
     Route: 048
     Dates: start: 2019, end: 2019
  9. VENETOCLAX. [Suspect]
     Active Substance: VENETOCLAX
     Dosage: WEEK 3 MAINTENANCE?PHASE
     Route: 048
     Dates: start: 2019, end: 2019
  10. VENETOCLAX. [Suspect]
     Active Substance: VENETOCLAX
     Dosage: WEEK 2
     Route: 048
     Dates: start: 2019, end: 2019
  11. VENETOCLAX. [Suspect]
     Active Substance: VENETOCLAX
     Dosage: WEEK 5
     Route: 048
     Dates: start: 2019, end: 2019

REACTIONS (9)
  - Febrile neutropenia [Recovered/Resolved]
  - Transient ischaemic attack [Recovered/Resolved]
  - Thrombocytopenia [Recovered/Resolved]
  - Hypogammaglobulinaemia [Recovered/Resolved]
  - Pancytopenia [Recovered/Resolved]
  - Upper respiratory tract infection [Recovered/Resolved]
  - Urinary tract infection [Recovered/Resolved]
  - Anaemia [Not Recovered/Not Resolved]
  - Pneumonia [Unknown]

NARRATIVE: CASE EVENT DATE: 2019
